FAERS Safety Report 5851943-3 (Version None)
Quarter: 2008Q3

REPORT INFORMATION
  Report Type: 
  Country: None (occurrence: None)
  Receive Date: 20080820
  Receipt Date: 20080812
  Transmission Date: 20090109
  Serious: Yes (Other)
  Sender: FDA-Public Use
  Company Number: FR-PFIZER INC-2008049403

PATIENT
  Sex: Male

DRUGS (2)
  1. AMLOR [Suspect]
     Indication: HYPERTENSION
  2. NEBIVOLOL HCL [Concomitant]

REACTIONS (3)
  - GINGIVAL HYPERTROPHY [None]
  - GINGIVAL INFECTION [None]
  - GINGIVITIS [None]
